FAERS Safety Report 8971404 (Version 2)
Quarter: 2013Q1

REPORT INFORMATION
  Report Type: Spontaneous
  Country: JP (occurrence: JP)
  Receive Date: 20121218
  Receipt Date: 20130110
  Transmission Date: 20140127
  Serious: Yes (Other)
  Sender: FDA-Public Use
  Company Number: JP-GENZYME-THYM-1003541

PATIENT
  Age: 14 Year
  Sex: Male
  Weight: 52 kg

DRUGS (2)
  1. THYMOGLOBULINE [Suspect]
     Indication: APLASTIC ANAEMIA
     Dosage: 2.5 MG, QD
     Route: 042
     Dates: start: 20121128, end: 20121203
  2. FILGRASTIM [Concomitant]
     Indication: APLASTIC ANAEMIA
     Dosage: 600 MCG, QD
     Route: 065
     Dates: start: 20121128

REACTIONS (1)
  - Respiratory disorder [Recovered/Resolved]
